FAERS Safety Report 7553799-X (Version None)
Quarter: 2011Q2

REPORT INFORMATION
  Report Type: 
  Country: None (occurrence: None)
  Receive Date: 20110609
  Receipt Date: 20110520
  Transmission Date: 20111010
  Serious: Yes (Hospitalization)
  Sender: FDA-Public Use
  Company Number: 2135225-2011-00026

PATIENT
  Age: 52 Year
  Sex: Female

DRUGS (7)
  1. HOMEOPATHIC TREATMENT [Concomitant]
  2. LYCOPODIUM GRANULES [Concomitant]
  3. TARAXACUM [Concomitant]
  4. IGNATIA [Concomitant]
  5. SOLIDAGO [Concomitant]
  6. BERBERIS [Concomitant]
  7. IBUPROFEN [Suspect]

REACTIONS (3)
  - PAPULE [None]
  - SKIN OEDEMA [None]
  - SKIN LESION [None]
